FAERS Safety Report 8467419-3 (Version None)
Quarter: 2012Q2

REPORT INFORMATION
  Report Type: 
  Country: None (occurrence: None)
  Receive Date: 20120620
  Receipt Date: 20120606
  Transmission Date: 20120825
  Serious: Yes (Hospitalization)
  Sender: FDA-Public Use
  Company Number: 2012AP001774

PATIENT
  Age: 59 Year
  Sex: Female

DRUGS (1)
  1. QUETIAPINE FUMARATE [Suspect]
     Indication: DEPRESSION
     Dosage: 150 MG;QD;PO
     Route: 048
     Dates: start: 20120301

REACTIONS (5)
  - ABDOMINAL DISCOMFORT [None]
  - LOSS OF CONSCIOUSNESS [None]
  - HALLUCINATIONS, MIXED [None]
  - VOMITING [None]
  - NAUSEA [None]
